FAERS Safety Report 8565622-5 (Version None)
Quarter: 2012Q3

REPORT INFORMATION
  Report Type: 
  Country: None (occurrence: None)
  Receive Date: 20120803
  Receipt Date: 20120727
  Transmission Date: 20120928
  Serious: Yes (Death)
  Sender: FDA-Public Use
  Company Number: -CUBIST-2012S1000641

PATIENT
  Age: 66 Year
  Sex: Female

DRUGS (2)
  1. VANCOMYCIN [Concomitant]
     Indication: PRODUCT USED FOR UNKNOWN INDICATION
     Dosage: DOSE UNIT:U
  2. CUBICIN [Suspect]
     Indication: PYREXIA

REACTIONS (1)
  - CEREBRAL HAEMORRHAGE [None]
